FAERS Safety Report 4877140-6 (Version None)
Quarter: 2005Q4

REPORT INFORMATION
  Report Type: 
  Country: None (occurrence: None)
  Receive Date: 20051206
  Receipt Date: 20050825
  Transmission Date: 20060501
  Serious: No
  Sender: FDA-Public Use
  Company Number: USA0508105387

PATIENT
  Age: 89 Year
  Weight: 58 kg

DRUGS (5)
  1. CYMBALTA [Suspect]
     Indication: NERVE COMPRESSION
     Dosage: 20 MG DAY
     Dates: start: 20050805, end: 20050810
  2. GLUCOPHAGE [Concomitant]
  3. ASPIRIN [Concomitant]
  4. COZAAR [Concomitant]
  5. PANCREATIC ENZYMES [Concomitant]

REACTIONS (11)
  - ANXIETY [None]
  - CONSTIPATION [None]
  - DEPRESSION [None]
  - DIFFICULTY IN WALKING [None]
  - DIZZINESS [None]
  - DYSSTASIA [None]
  - HYPERHIDROSIS [None]
  - MALAISE [None]
  - NAUSEA [None]
  - PANIC ATTACK [None]
  - SUICIDAL IDEATION [None]
